FAERS Safety Report 7900334-X (Version None)
Quarter: 2011Q4

REPORT INFORMATION
  Report Type: 
  Country: None (occurrence: None)
  Receive Date: 20111104
  Receipt Date: 20111018
  Transmission Date: 20120403
  Serious: Yes (Hospitalization)
  Sender: FDA-Public Use
  Company Number: COL_10060_2011

PATIENT
  Age: 25 Year
  Sex: Female

DRUGS (3)
  1. COLGATE TOTAL WHITENING GEL TOOTHPASTE [Suspect]
     Indication: DENTAL PLAQUE
     Dosage: ONCE/ORAL
     Route: 048
     Dates: start: 20111018, end: 20111018
  2. COLGATE TOTAL WHITENING GEL TOOTHPASTE [Suspect]
     Indication: GINGIVITIS
     Dosage: ONCE/ORAL
     Route: 048
     Dates: start: 20111018, end: 20111018
  3. COLGATE TOTAL WHITENING GEL TOOTHPASTE [Suspect]
     Indication: DENTAL CARIES
     Dosage: ONCE/ORAL
     Route: 048
     Dates: start: 20111018, end: 20111018

REACTIONS (7)
  - HYPERSENSITIVITY [None]
  - ORAL DISCOMFORT [None]
  - ORAL MUCOSAL ERYTHEMA [None]
  - OEDEMA MOUTH [None]
  - OROPHARYNGEAL BLISTERING [None]
  - STOMATITIS [None]
  - FLUORIDE INCREASED [None]
